FAERS Safety Report 5545404-9 (Version None)
Quarter: 2007Q4

REPORT INFORMATION
  Report Type: 
  Country: None (occurrence: None)
  Receive Date: 20071211
  Receipt Date: 20071205
  Transmission Date: 20080405
  Serious: Yes (Life-Threatening, Other)
  Sender: FDA-Public Use
  Company Number: FR-ELI_LILLY_AND_COMPANY-FR200712000848

PATIENT
  Sex: Male

DRUGS (3)
  1. ZYPREXA [Suspect]
     Indication: MANIA
     Dosage: 20 MG, DAILY (1/D)
     Route: 048
     Dates: start: 20071012, end: 20071014
  2. NOZINAN [Concomitant]
     Indication: MANIA
     Dosage: 100 MG, OTHER
     Route: 048
     Dates: start: 20071012, end: 20071014
  3. DROLEPTAN [Concomitant]
     Dosage: 20 MG, OTHER
     Route: 030
     Dates: start: 20071012, end: 20071014

REACTIONS (2)
  - COMA [None]
  - DRUG INTERACTION [None]
